FAERS Safety Report 18619046 (Version 2)
Quarter: 2020Q4

REPORT INFORMATION
  Report Type: Spontaneous
  Country: US (occurrence: TR)
  Receive Date: 20201215
  Receipt Date: 20201221
  Transmission Date: 20210114
  Serious: Yes (Other)
  Sender: FDA-Public Use
  Company Number: TR-BIOMARINAP-TR-2020-133846

PATIENT
  Age: 10 Year
  Sex: Female

DRUGS (1)
  1. ALDURAZYME [Suspect]
     Active Substance: LARONIDASE
     Indication: MUCOPOLYSACCHARIDOSIS I
     Dosage: 7 DOSAGE FORM
     Route: 065
     Dates: start: 2011

REACTIONS (18)
  - Hypoacusis [Unknown]
  - Hypertension [Unknown]
  - Sleep apnoea syndrome [Unknown]
  - Ear tube insertion [Unknown]
  - Short stature [Unknown]
  - Hand deformity [Unknown]
  - Hydrocephalus [Unknown]
  - Adenoidectomy [Unknown]
  - Aggression [Unknown]
  - Blindness unilateral [Unknown]
  - Umbilical hernia [Unknown]
  - Corneal transplant [Unknown]
  - CSF shunt operation [Unknown]
  - Visual impairment [Unknown]
  - Inguinal hernia [Unknown]
  - Tonsillectomy [Unknown]
  - Cardiac disorder [Unknown]
  - Vascular access complication [Unknown]

NARRATIVE: CASE EVENT DATE: 2011
